FAERS Safety Report 18434952 (Version 1)
Quarter: 2020Q4

REPORT INFORMATION
  Report Type: Spontaneous
  Country: GB (occurrence: GB)
  Receive Date: 20201027
  Receipt Date: 20201027
  Transmission Date: 20210114
  Serious: Yes (Disabling)
  Sender: FDA-Public Use
  Company Number: GB-JAZZ-2020-GB-013060

PATIENT
  Age: 43 Year
  Sex: Female

DRUGS (1)
  1. XYREM [Suspect]
     Active Substance: SODIUM OXYBATE
     Indication: NARCOLEPSY
     Dosage: 2000 MILLIGRAM, QD
     Route: 048
     Dates: start: 20190321, end: 20200120

REACTIONS (2)
  - Depression [Recovering/Resolving]
  - Nightmare [Recovering/Resolving]

NARRATIVE: CASE EVENT DATE: 201903
